FAERS Safety Report 9582718 (Version 1)
Quarter: 2013Q4

REPORT INFORMATION
  Report Type: Spontaneous
  Country: US (occurrence: US)
  Receive Date: 20131002
  Receipt Date: 20131002
  Transmission Date: 20140711
  Serious: No
  Sender: FDA-Public Use
  Company Number: US-AMGEN-USASP2013042416

PATIENT
  Age: 65 Year
  Sex: Male
  Weight: 104.31 kg

DRUGS (14)
  1. ENBREL [Suspect]
     Indication: PRODUCT USED FOR UNKNOWN INDICATION
     Dosage: 50 MG, ONCE A WEEK
     Route: 058
  2. BUPROPION [Concomitant]
     Dosage: 75 MG, UNK
  3. METFORMIN [Concomitant]
     Dosage: 500 MG, UNK
  4. OMEPRAZOLE [Concomitant]
     Dosage: 40 MG, UNK
  5. ISONIAZID [Concomitant]
     Dosage: 300 MG, UNK
  6. SALSALATE [Concomitant]
     Dosage: 500 MG, UNK
  7. METOPROLOL [Concomitant]
     Dosage: 50 MG, UNK
  8. METOPROLOL [Concomitant]
     Dosage: 50 MG, UNK
  9. DILTIAZEM [Concomitant]
     Dosage: 120 MG, UNK
  10. CRESTOR [Concomitant]
     Dosage: 5 MG, UNK
  11. VALSARTAN HCTZ [Concomitant]
     Dosage: 80-12.5, UNK, UNK
  12. FISH OIL [Concomitant]
     Dosage: UNK
  13. ASPIRIN LOW [Concomitant]
     Dosage: 81 MG, UNK
  14. VITAMIN B6 [Concomitant]
     Dosage: 250 MG, UNK

REACTIONS (1)
  - Cough [Unknown]
